FAERS Safety Report 4985876-1 (Version None)
Quarter: 2006Q2

REPORT INFORMATION
  Report Type: 
  Country: None (occurrence: None)
  Receive Date: 20060428
  Receipt Date: 20060303
  Transmission Date: 20061013
  Serious: Yes (Other)
  Sender: FDA-Public Use
  Company Number: PHEH2006US02950

PATIENT
  Age: 64 Year
  Sex: Female
  Weight: 108.84 kg

DRUGS (9)
  1. TENORMIN [Concomitant]
     Dosage: 50MG, BID
  2. XANAX [Concomitant]
     Dosage: 0.5MG, TID
  3. DIAZIDE [Concomitant]
     Dosage: UNK, QD
  4. PULMICORT [Concomitant]
     Dosage: UNK, BID
  5. XOPENEX [Concomitant]
     Dosage: UNK, PRN
  6. ALTACE [Concomitant]
     Dosage: 2.5, QD
  7. SINGULAIR [Concomitant]
     Dosage: 10, HS
  8. FORADIL [Suspect]
     Indication: ASTHMA
     Dosage: 1 CAPSULE (12MCG), BID
     Dates: start: 20051222
  9. GLEEVEC [Suspect]

REACTIONS (7)
  - CHEST DISCOMFORT [None]
  - CHEST PAIN [None]
  - DEVICE MALFUNCTION [None]
  - DYSPHONIA [None]
  - MEDICAL DEVICE COMPLICATION [None]
  - NEOPLASM PROGRESSION [None]
  - POSITRON EMISSION TOMOGRAM ABNORMAL [None]
